FAERS Safety Report 15001410 (Version 2)
Quarter: 2018Q2

REPORT INFORMATION
  Report Type: Spontaneous
  Country: US (occurrence: US)
  Receive Date: 20180612
  Receipt Date: 20180615
  Transmission Date: 20180711
  Serious: Yes (Death, Other)
  Sender: FDA-Public Use
  Company Number: US-PFIZER INC-2018235630

PATIENT
  Age: 87 Year
  Sex: Male
  Weight: 61.23 kg

DRUGS (14)
  1. WARFARIN [Concomitant]
     Active Substance: WARFARIN
     Dosage: 5 MG, DAILY(5 MG TABLET ONE DAILY )
  2. FINASTERIDE. [Concomitant]
     Active Substance: FINASTERIDE
     Dosage: 5 MG, 1X/DAY(5 MG 1 TABLET BY MOUTH ONCE DAILY)
     Route: 048
  3. LATANOPROST. [Concomitant]
     Active Substance: LATANOPROST
     Indication: EYE DISORDER
     Dosage: 1 GTT, (1 DROP IN LEFT EYE AT BEDTIME)
  4. PRAVASTATIN. [Concomitant]
     Active Substance: PRAVASTATIN
     Dosage: 40 MG, 1X/DAY(40 MG ONE TAB AT BEDTIME )
  5. DEMADEX [Concomitant]
     Active Substance: TORSEMIDE
     Dosage: 60 MG, 2X/DAY(20 MG, 3 TABLETS IN THE MORNING AND 3 TABLETS AT 1500)
  6. DORZOLAMIDE [Concomitant]
     Active Substance: DORZOLAMIDE
     Dosage: 1 GTT, 2X/DAY(1 DROP IN LEFT EYE 2 TIMES DAILY)
  7. DEMADEX [Concomitant]
     Active Substance: TORSEMIDE
     Dosage: 4 DF, UNK(4 TABLETS TWICE A DAY)
  8. LASIX [Concomitant]
     Active Substance: FUROSEMIDE
     Dosage: UNK
  9. ISOSORBIDE. [Concomitant]
     Active Substance: ISOSORBIDE
     Dosage: 10 MG, 3X/DAY(10 MG TAKE ONE TABLET BY MOUTH 3 TIMES A DAY AT 0800, 1500, 2100)
     Route: 048
  10. MELATONIN [Concomitant]
     Active Substance: MELATONIN
     Dosage: UNK
  11. NIACIN. [Concomitant]
     Active Substance: NIACIN
     Dosage: UNK
  12. TIKOSYN [Suspect]
     Active Substance: DOFETILIDE
     Indication: ATRIAL FIBRILLATION
     Dosage: 375 MG, 2X/DAY
     Dates: end: 201804
  13. GLIMEPIRIDE. [Concomitant]
     Active Substance: GLIMEPIRIDE
     Dosage: UNK
  14. MAGNESIUM [Concomitant]
     Active Substance: MAGNESIUM
     Dosage: UNK

REACTIONS (14)
  - Drug ineffective [Fatal]
  - Insomnia [Unknown]
  - Renal failure [Unknown]
  - Weight decreased [Unknown]
  - Feeding disorder [Unknown]
  - Cardiac failure congestive [Fatal]
  - Overdose [Unknown]
  - Humerus fracture [Unknown]
  - Coronary artery disease [Fatal]
  - Dysarthria [Unknown]
  - Oedema [Unknown]
  - Confusional state [Unknown]
  - Pain [Unknown]
  - Fall [Unknown]
